FAERS Safety Report 20092652 (Version 5)
Quarter: 2022Q1

REPORT INFORMATION
  Report Type: Spontaneous
  Country: CA (occurrence: CA)
  Receive Date: 20211120
  Receipt Date: 20220113
  Transmission Date: 20220423
  Serious: Yes (Other)
  Sender: FDA-Public Use
  Company Number: CA-CELLTRION INC.-2021CA015694

PATIENT

DRUGS (2)
  1. INFLECTRA [Suspect]
     Active Substance: INFLIXIMAB-DYYB
     Indication: Crohn^s disease
     Dosage: 5 MG/KG, 0, 2, 6, THEN Q 8 WEEKS
     Route: 042
     Dates: start: 20211027
  2. INFLECTRA [Suspect]
     Active Substance: INFLIXIMAB-DYYB
     Dosage: 5 MG/KG,  0, 2, 6, THEN Q 8 WEEKS
     Route: 042
     Dates: start: 20211129

REACTIONS (12)
  - Arthritis [Unknown]
  - Infusion related reaction [Unknown]
  - Arthralgia [Recovered/Resolved]
  - Haematoma [Unknown]
  - Pain [Unknown]
  - Asthenia [Unknown]
  - Gait disturbance [Unknown]
  - Musculoskeletal stiffness [Unknown]
  - Skeletal injury [Unknown]
  - Fall [Unknown]
  - Product dose omission issue [Unknown]
  - Inappropriate schedule of product administration [Unknown]

NARRATIVE: CASE EVENT DATE: 20211001
